FAERS Safety Report 9645850 (Version 1)
Quarter: 2013Q4

REPORT INFORMATION
  Report Type: Spontaneous
  Country: US (occurrence: None)
  Receive Date: 20131024
  Receipt Date: 20131024
  Transmission Date: 20140711
  Serious: Yes (Hospitalization)
  Sender: FDA-Public Use
  Company Number: None

PATIENT
  Age: 43 Year
  Sex: Female

DRUGS (1)
  1. DEXAMETHASONE [Suspect]
     Indication: NEOPLASM MALIGNANT
     Route: 048
     Dates: start: 20130530

REACTIONS (6)
  - Diabetic ketoacidosis [None]
  - Hyperglycaemia [None]
  - Blood potassium increased [None]
  - Electrocardiogram T wave peaked [None]
  - Blood sodium decreased [None]
  - Anion gap increased [None]
